FAERS Safety Report 9718164 (Version 1)
Quarter: 2013Q4

REPORT INFORMATION
  Report Type: Spontaneous
  Country: US (occurrence: US)
  Receive Date: 20131125
  Receipt Date: 20131125
  Transmission Date: 20140711
  Serious: No
  Sender: FDA-Public Use
  Company Number: US-VIVUS-2013V1000067

PATIENT
  Age: 45 Year
  Sex: Female
  Weight: 108.96 kg

DRUGS (4)
  1. QSYMIA 3.75MG/23MG [Suspect]
     Indication: WEIGHT DECREASED
     Route: 048
     Dates: start: 20130124, end: 20130128
  2. FLINTSTONES VITAMINS [Concomitant]
     Indication: VITAMIN SUPPLEMENTATION
     Dosage: DAILY DOSE: 1 TABLET,
     Route: 048
  3. POTASSIUM [Concomitant]
     Indication: MINERAL SUPPLEMENTATION
     Dosage: DAILY DOSE: 1 TABLET,
     Route: 048
  4. ZINC [Concomitant]
     Indication: MINERAL SUPPLEMENTATION
     Dosage: DAILY DOSE: 1 TABLET,
     Route: 048

REACTIONS (5)
  - Depressed mood [Recovered/Resolved]
  - Negative thoughts [Recovered/Resolved]
  - Violence-related symptom [Recovered/Resolved]
  - Mood swings [Recovered/Resolved]
  - Malaise [Recovered/Resolved]
